FAERS Safety Report 4453017-5 (Version None)
Quarter: 2004Q3

REPORT INFORMATION
  Report Type: 
  Country: None (occurrence: None)
  Receive Date: 20040916
  Receipt Date: 20040907
  Transmission Date: 20050211
  Serious: Yes (Other)
  Sender: FDA-Public Use
  Company Number: 2004232473US

PATIENT
  Sex: Female
  Weight: 72 kg

DRUGS (9)
  1. ZYVOX [Suspect]
     Indication: GLYCOPEPTIDE ANTIBIOTIC RESISTANT ENTEROCOCCAL INFECTION
     Dosage: 600 MG, BID, IV
     Route: 042
     Dates: start: 20040907, end: 20040907
  2. AZACTAM [Concomitant]
  3. VANCOMYCIN [Concomitant]
  4. FLAGYL [Concomitant]
  5. LOVENOX [Concomitant]
  6. SOLU-MEDROL [Concomitant]
  7. INSULIN ILETIN I REGULAR (INSULIN) [Concomitant]
  8. VERSID (MEBENDAZOLE) [Concomitant]
  9. GENTAMICIN [Concomitant]

REACTIONS (4)
  - EMOTIONAL DISTRESS [None]
  - ERYTHEMA [None]
  - HYPERSENSITIVITY [None]
  - SKIN WARM [None]
